FAERS Safety Report 8288520-3 (Version None)
Quarter: 2012Q2

REPORT INFORMATION
  Report Type: 
  Country: None (occurrence: None)
  Receive Date: 20120416
  Receipt Date: 20120410
  Transmission Date: 20120825
  Serious: Yes (Hospitalization)
  Sender: FDA-Public Use
  Company Number: TW-PFIZER INC-2012089604

PATIENT
  Age: 54 Year
  Sex: Female
  Weight: 58 kg

DRUGS (11)
  1. RITUXIMAB [Suspect]
     Indication: NON-HODGKIN'S LYMPHOMA
     Dosage: 577.5 MG, CYCLIC (DAY 1 OF EACH 28 DAY CYCLE)
     Route: 042
     Dates: start: 20120105, end: 20120202
  2. CISPLATIN [Suspect]
     Indication: NON-HODGKIN'S LYMPHOMA
     Dosage: 40 MG QD
     Route: 042
     Dates: start: 20120327
  3. CHLORHEXIDINE GAR [Concomitant]
     Indication: PROPHYLAXIS
     Dosage: UNK
     Dates: start: 20110802
  4. METHYLPREDNISOLONE ACETATE [Suspect]
     Indication: NON-HODGKIN'S LYMPHOMA
     Dosage: 500 MG QD
     Route: 042
     Dates: start: 20120327
  5. VEPESID [Suspect]
     Indication: NON-HODGKIN'S LYMPHOMA
     Dosage: 60 MG QD
     Route: 042
     Dates: start: 20120327
  6. INOTUZUMAB OZOGAMICIN [Suspect]
     Indication: NON-HODGKIN'S LYMPHOMA
     Dosage: 2.77 MG, CYCLIC (DAY 2 OF EACH 28 DAY CYCLE)
     Route: 042
     Dates: start: 20120106, end: 20120203
  7. KYTRIL [Concomitant]
     Indication: PROPHYLAXIS
     Dosage: UNK
     Dates: start: 20120327, end: 20120401
  8. METOCLOPRAMIDE HYDROCHLORIDE [Concomitant]
     Indication: VOMITING
     Dosage: UNK
     Dates: start: 20120324, end: 20120402
  9. CYTOSAR-U [Suspect]
     Indication: NON-HODGKIN'S LYMPHOMA
     Dosage: 3100 MG QD
     Route: 042
     Dates: start: 20120331
  10. NORVASC [Concomitant]
     Indication: HYPERTENSION
     Dosage: UNK
     Dates: start: 20060101
  11. ULTRACET [Concomitant]
     Indication: SPONDYLOLISTHESIS
     Dosage: UNK
     Dates: start: 20111206

REACTIONS (1)
  - FEBRILE NEUTROPENIA [None]
